FAERS Safety Report 4716745-X (Version None)
Quarter: 2005Q3

REPORT INFORMATION
  Report Type: 
  Country: None (occurrence: None)
  Receive Date: 20050719
  Receipt Date: 20050708
  Transmission Date: 20060218
  Serious: Yes (Other)
  Sender: FDA-Public Use
  Company Number: PHFR2005CY02420

PATIENT
  Age: 75 Year
  Sex: Female
  Weight: 84 kg

DRUGS (5)
  1. GOSERELIN [Concomitant]
  2. DEXAMETHASONE [Concomitant]
  3. GLYBURIDE [Concomitant]
  4. GLUCOPHAGE [Concomitant]
  5. ZOMETA [Suspect]
     Indication: PROSTATE CANCER METASTATIC
     Dosage: 4 MG, QMO
     Route: 042

REACTIONS (3)
  - ASEPTIC NECROSIS BONE [None]
  - PAIN IN JAW [None]
  - TOOTH EXTRACTION [None]
